FAERS Safety Report 10528596 (Version 1)
Quarter: 2014Q4

REPORT INFORMATION
  Report Type: Spontaneous
  Country: US (occurrence: None)
  Receive Date: 20141017
  Receipt Date: 20141017
  Transmission Date: 20150528
  Serious: Yes (Disabling)
  Sender: FDA-Public Use
  Company Number: None

PATIENT
  Age: 29 Year
  Sex: Male
  Weight: 58.97 kg

DRUGS (1)
  1. CIPROFLOXACIN. [Suspect]
     Active Substance: CIPROFLOXACIN
     Indication: NAIL INFECTION
     Route: 048
     Dates: start: 20130408, end: 20130413

REACTIONS (17)
  - Sleep disorder [None]
  - Tinnitus [None]
  - Anxiety [None]
  - Pain in jaw [None]
  - Headache [None]
  - Facial pain [None]
  - Myalgia [None]
  - Skin burning sensation [None]
  - Serum sickness [None]
  - Tendonitis [None]
  - Muscle twitching [None]
  - Depression [None]
  - Psychiatric symptom [None]
  - Rash [None]
  - Tendon pain [None]
  - Eye irritation [None]
  - Paraesthesia [None]

NARRATIVE: CASE EVENT DATE: 20130410
